FAERS Safety Report 21123864 (Version 1)
Quarter: 2022Q3

REPORT INFORMATION
  Report Type: Spontaneous
  Country: TR (occurrence: TR)
  Receive Date: 20220725
  Receipt Date: 20220725
  Transmission Date: 20221027
  Serious: Yes (Death)
  Sender: FDA-Public Use
  Company Number: TR-BEH-2022147716

PATIENT
  Age: 59 Year
  Sex: Male

DRUGS (1)
  1. HIZENTRA [Suspect]
     Active Substance: HUMAN IMMUNOGLOBULIN G
     Indication: Guillain-Barre syndrome
     Dosage: THIRD DOSE
     Route: 058
     Dates: start: 20220624

REACTIONS (3)
  - Tuberculosis [Fatal]
  - No adverse event [Unknown]
  - Off label use [Unknown]
